FAERS Safety Report 9774413 (Version 1)
Quarter: 2013Q4

REPORT INFORMATION
  Report Type: Spontaneous
  Country: NL (occurrence: NL)
  Receive Date: 20131220
  Receipt Date: 20131220
  Transmission Date: 20140711
  Serious: Yes (Hospitalization)
  Sender: FDA-Public Use
  Company Number: NL-NOVOPROD-395367

PATIENT
  Age: 36 Year
  Sex: Male
  Weight: 117 kg

DRUGS (14)
  1. LEVEMIR PENFILL [Suspect]
     Indication: TYPE 1 DIABETES MELLITUS
     Dosage: UNK
     Route: 058
     Dates: start: 2006, end: 20131005
  2. HUMALOG [Concomitant]
     Indication: TYPE 1 DIABETES MELLITUS
     Dosage: UNK
     Route: 058
     Dates: start: 2006, end: 20131005
  3. CIPROFLOXACIN [Concomitant]
     Indication: EAR INFECTION
     Dosage: 3 MG, SINGLE
     Route: 048
     Dates: start: 20130923
  4. CIPROFLOXACIN [Concomitant]
     Indication: EAR INFECTION
     Dosage: UNK
     Route: 048
     Dates: end: 20131007
  5. METFORMIN [Concomitant]
     Indication: TYPE 1 DIABETES MELLITUS
     Dosage: 500 MG, SINGLE
     Route: 048
  6. PANTOPRAZOLE [Concomitant]
     Route: 048
  7. ATORVASTATIN [Concomitant]
     Dosage: UNK
     Dates: end: 20131005
  8. PERINDOPRIL ERBUMINE [Concomitant]
     Dosage: 2 MG, SINGLE
     Route: 048
  9. CLOPIDOGREL HYDROCHLORIDE [Concomitant]
     Dosage: 75 MG, SINGLE
     Route: 048
  10. CLEMASTINE [Concomitant]
     Dosage: 1 MG, SINGLE
     Route: 048
     Dates: end: 20131005
  11. ACETYLSALICYLIC ACID [Concomitant]
     Dosage: 80 MG, SINGLE
  12. OFLOXACIN [Concomitant]
     Dosage: 3 MG, TID
     Route: 065
  13. TRAMADOL HYDROCHLORIDE [Concomitant]
     Dosage: UNK
     Route: 048
     Dates: end: 20131005
  14. PARACETAMOL [Concomitant]
     Dosage: 500 MG, UNK(TIMES PER AS NECESSARY 1000 MG)
     Route: 048
     Dates: end: 20131005

REACTIONS (4)
  - Pruritus [Recovering/Resolving]
  - Hepatitis [Recovering/Resolving]
  - Drug interaction [Recovering/Resolving]
  - Hyperglycaemia [Recovering/Resolving]
